FAERS Safety Report 5783346-4 (Version None)
Quarter: 2008Q2

REPORT INFORMATION
  Report Type: 
  Country: None (occurrence: None)
  Receive Date: 20080605
  Receipt Date: 20080328
  Transmission Date: 20081010
  Serious: No
  Sender: FDA-Public Use
  Company Number: A0715499A

PATIENT

DRUGS (1)
  1. ALLI [Suspect]
     Indication: DRUG USE FOR UNKNOWN INDICATION

REACTIONS (5)
  - ALCOHOL INTOLERANCE [None]
  - ARTHRITIS [None]
  - FLUID RETENTION [None]
  - MALAISE [None]
  - WEIGHT INCREASED [None]
